FAERS Safety Report 8726198 (Version 2)
Quarter: 2013Q2

REPORT INFORMATION
  Report Type: Spontaneous
  Country: US (occurrence: None)
  Receive Date: 20120731
  Receipt Date: 20130415
  Transmission Date: 20140414
  Serious: Yes (Other)
  Sender: FDA-Public Use
  Company Number: ALK_02647_2012

PATIENT
  Age: 26 Year
  Sex: Male

DRUGS (1)
  1. VIVITROL [Suspect]
     Indication: DRUG DEPENDENCE
     Dosage: (380 MG 1X/MONTH INTRAMUSCULAR)
     Route: 030

REACTIONS (2)
  - IMPLANT SITE ABSCESS [None]
  - Injection site reaction [None]
